FAERS Safety Report 8722913 (Version 3)
Quarter: 2013Q1

REPORT INFORMATION
  Report Type: Report from Study
  Country: JP (occurrence: JP)
  Receive Date: 20120814
  Receipt Date: 20130315
  Transmission Date: 20140127
  Serious: Yes (Hospitalization)
  Sender: FDA-Public Use
  Company Number: JP-009507513-1208JPN000282

PATIENT
  Age: 55 Year
  Sex: Male
  Weight: 49 kg

DRUGS (8)
  1. PEGINTRON [Suspect]
     Indication: CHRONIC HEPATITIS C
     Dosage: 1.5 MCG/KG/WEEK, DAILY DOSE UNKNOWN
     Route: 058
     Dates: start: 20120530, end: 20120817
  2. REBETOL [Suspect]
     Indication: CHRONIC HEPATITIS C
     Dosage: 600 MG, QD
     Route: 048
     Dates: start: 20120530, end: 20120817
  3. TELAVIC [Suspect]
     Indication: CHRONIC HEPATITIS C
     Dosage: 2250 MG , QD
     Route: 048
     Dates: start: 20120530, end: 20120605
  4. URSO [Concomitant]
     Indication: CHRONIC HEPATITIS C
     Dosage: 300 MG, QD, FORMULATION: POR
     Route: 048
  5. ALLEGRA [Concomitant]
     Indication: PROPHYLAXIS
     Dosage: 120 MG, QD , FORMULATION:POR
     Route: 048
     Dates: start: 20120531, end: 20120601
  6. FAMOTIDINE [Concomitant]
     Indication: ABDOMINAL PAIN UPPER
     Dosage: 40 MG, QD
     Route: 042
     Dates: start: 20120602, end: 20120611
  7. FAMOTIDINE [Concomitant]
     Dosage: 40 MG, QD
     Route: 048
     Dates: start: 20120602, end: 20120611
  8. NAUZELIN [Concomitant]
     Indication: NAUSEA
     Dosage: 30 MG, QD , FORMULATION: POR
     Route: 048
     Dates: start: 20120602, end: 20120606

REACTIONS (3)
  - Vomiting [Recovered/Resolved]
  - Nausea [Recovered/Resolved]
  - Abdominal pain upper [Recovered/Resolved]
